FAERS Safety Report 15013441 (Version 1)
Quarter: 2018Q2

REPORT INFORMATION
  Report Type: Spontaneous
  Country: US (occurrence: US)
  Receive Date: 20180614
  Receipt Date: 20180614
  Transmission Date: 20180711
  Serious: No
  Sender: FDA-Public Use
  Company Number: US-BAUSCH-BL-2017-029808

PATIENT
  Age: 74 Year
  Sex: Male
  Weight: 83.99 kg

DRUGS (2)
  1. RELISTOR [Suspect]
     Active Substance: METHYLNALTREXONE BROMIDE
     Indication: CONSTIPATION
     Dosage: AS NEEDED, 1 SYRINGE, TWICE A WEEK
     Route: 058
     Dates: start: 2014
  2. RELISTOR [Suspect]
     Active Substance: METHYLNALTREXONE BROMIDE
     Indication: BACK PAIN
     Dosage: AS NEEDED, 4 SYRINGE TWICE A WEEK
     Route: 058
     Dates: start: 2014

REACTIONS (1)
  - Drug ineffective [Recovered/Resolved]
